FAERS Safety Report 7502577-6 (Version None)
Quarter: 2011Q2

REPORT INFORMATION
  Report Type: 
  Country: None (occurrence: None)
  Receive Date: 20110517
  Receipt Date: 20110509
  Transmission Date: 20111010
  Serious: Yes (Hospitalization)
  Sender: FDA-Public Use
  Company Number: DKLU1070454

PATIENT
  Age: 27 Year
  Sex: Female
  Weight: 63.63 kg

DRUGS (17)
  1. DOCUSATE SODIUM (DOCUSATE SODIUM) [Concomitant]
  2. ZONISAMIDE [Concomitant]
  3. ATIVAN [Concomitant]
  4. DIFFERIN [Concomitant]
  5. LEXAPRO [Concomitant]
  6. FRISIUM (CLOBAZAM) [Concomitant]
  7. DIASTAT (DIAZEPAM) (GEL) [Concomitant]
  8. FLONASE (FLUTICASONE PROPIONATE) (NASAL SPRAY, SUSPENSION) [Concomitant]
  9. VAGUS NERVE STIMULATOR (ANTIEPILEPTICS) [Concomitant]
  10. TOPIRAMATE [Concomitant]
  11. OXCARBAZEPINE [Concomitant]
  12. PATAMOL (OLOPATADINE HYDROCHLORIDE) (0.01 %, EYE DROPS, SOLUTION) [Concomitant]
  13. MULTIVITAMIN (VIGRAM) (TABLET) [Concomitant]
  14. ACETAMINOPHEN [Concomitant]
  15. SABRIL [Suspect]
     Indication: CONVULSION
     Dosage: 1 G GRAM(S), QAM, ORAL ; 500 MG MILLIGRAM(S), QPM, ORAL
     Route: 048
     Dates: start: 20110122
  16. SABRIL [Suspect]
     Indication: CONVULSION
     Dosage: 1 G GRAM(S), QAM, ORAL ; 500 MG MILLIGRAM(S), QPM, ORAL
     Route: 048
     Dates: start: 20110122
  17. CALCIUM (CALCIUM) [Concomitant]

REACTIONS (2)
  - COMPLEX PARTIAL SEIZURES [None]
  - GRAND MAL CONVULSION [None]
